FAERS Safety Report 16096335 (Version 2)
Quarter: 2019Q2

REPORT INFORMATION
  Report Type: Report from Study
  Country: US (occurrence: US)
  Receive Date: 20190320
  Receipt Date: 20190405
  Transmission Date: 20190711
  Serious: Yes (Other)
  Sender: FDA-Public Use
  Company Number: US-GILEAD-2019-0397495

PATIENT
  Age: 66 Year
  Sex: Female
  Weight: 62.6 kg

DRUGS (9)
  1. LASIX [Concomitant]
     Active Substance: FUROSEMIDE
  2. ALDACTONE 50 HCT [Concomitant]
  3. ADCIRCA [Concomitant]
     Active Substance: TADALAFIL
  4. AMBRISENTAN [Suspect]
     Active Substance: AMBRISENTAN
     Indication: SCLERODERMA
     Dosage: 10 MG
     Route: 065
  5. AMBRISENTAN [Suspect]
     Active Substance: AMBRISENTAN
     Indication: PULMONARY HYPERTENSION
  6. VELETRI [Concomitant]
     Active Substance: EPOPROSTENOL
  7. VITAMIN D3 [Concomitant]
     Active Substance: CHOLECALCIFEROL
  8. TYLENOL 8HR [Concomitant]
     Active Substance: ACETAMINOPHEN
  9. ASPIRIN (E.C.) [Concomitant]
     Active Substance: ASPIRIN

REACTIONS (1)
  - Pneumonia [Recovered/Resolved]

NARRATIVE: CASE EVENT DATE: 20190301
